FAERS Safety Report 16762270 (Version 1)
Quarter: 2019Q3

REPORT INFORMATION
  Report Type: Spontaneous
  Country: GB (occurrence: GB)
  Receive Date: 20190831
  Receipt Date: 20190831
  Transmission Date: 20191005
  Serious: Yes (Other)
  Sender: FDA-Public Use
  Company Number: GB-AUROBINDO-AUR-APL-2019-057165

PATIENT

DRUGS (2)
  1. CEFALEXIN ORAL SUSPENSION BP 125MG/5ML [Suspect]
     Active Substance: CEPHALEXIN
     Indication: URINARY TRACT INFECTION
     Dosage: 5 MILLILITER, ONCE A DAY
     Route: 048
     Dates: start: 20190529
  2. NITROFURANTOIN. [Concomitant]
     Active Substance: NITROFURANTOIN
     Indication: PRODUCT USED FOR UNKNOWN INDICATION
     Dosage: AT NIGHT.
     Route: 065
     Dates: start: 20190805

REACTIONS (2)
  - Deafness [Recovering/Resolving]
  - Ototoxicity [Recovering/Resolving]
